FAERS Safety Report 8863186 (Version 2)
Quarter: 2015Q1

REPORT INFORMATION
  Report Type: Report from Study
  Country: US (occurrence: US)
  Receive Date: 20121026
  Receipt Date: 20150128
  Transmission Date: 20150721
  Serious: Yes (Death)
  Sender: FDA-Public Use
  Company Number: US-ROCHE-1133641

PATIENT
  Sex: Male
  Weight: 64.47 kg

DRUGS (24)
  1. DECADRON [Concomitant]
     Active Substance: DEXAMETHASONE
     Route: 065
     Dates: start: 20000927
  2. BENADRYL [Concomitant]
     Active Substance: DIPHENHYDRAMINE HYDROCHLORIDE
     Route: 042
     Dates: start: 20000927
  3. LEVAQUIN [Concomitant]
     Active Substance: LEVOFLOXACIN
  4. TYLENOL [Concomitant]
     Active Substance: ACETAMINOPHEN
     Route: 065
     Dates: start: 20000927
  5. ZITHROMAX [Concomitant]
     Active Substance: AZITHROMYCIN DIHYDRATE
  6. DIFLUCAN [Concomitant]
     Active Substance: FLUCONAZOLE
  7. COMBIVENT [Concomitant]
     Active Substance: ALBUTEROL SULFATE\IPRATROPIUM BROMIDE
     Route: 065
  8. COMPAZINE [Concomitant]
     Active Substance: PROCHLORPERAZINE MALEATE
     Route: 048
     Dates: start: 20000814
  9. BIAXIN [Concomitant]
     Active Substance: CLARITHROMYCIN
  10. SOLU-MEDROL [Concomitant]
     Active Substance: METHYLPREDNISOLONE SODIUM SUCCINATE
  11. COMPAZINE [Concomitant]
     Active Substance: PROCHLORPERAZINE MALEATE
     Route: 048
     Dates: start: 20000927
  12. DECADRON [Concomitant]
     Active Substance: DEXAMETHASONE
     Route: 048
     Dates: start: 20000814
  13. ANZEMET [Concomitant]
     Active Substance: DOLASETRON MESYLATE
     Route: 065
     Dates: start: 20000814
  14. LASIX [Concomitant]
     Active Substance: FUROSEMIDE
  15. PREDNISONE. [Concomitant]
     Active Substance: PREDNISONE
     Dosage: 100X5
     Route: 048
     Dates: start: 1993, end: 1998
  16. ZANTAC [Concomitant]
     Active Substance: RANITIDINE HYDROCHLORIDE
  17. PRIMAXIN [Concomitant]
     Active Substance: CILASTATIN SODIUM\IMIPENEM
  18. RITUXAN [Suspect]
     Active Substance: RITUXIMAB
     Indication: CHRONIC LYMPHOCYTIC LEUKAEMIA
     Route: 042
     Dates: start: 20000927
  19. NITROGLYCERINE [Concomitant]
     Active Substance: NITROGLYCERIN
  20. FORTAZ [Concomitant]
     Active Substance: CEFTAZIDIME SODIUM
  21. COMBIVENT [Concomitant]
     Active Substance: ALBUTEROL SULFATE\IPRATROPIUM BROMIDE
     Route: 065
  22. PREDNISONE. [Concomitant]
     Active Substance: PREDNISONE
     Dosage: 100X5
     Route: 065
     Dates: start: 20000905
  23. QUININE [Concomitant]
     Active Substance: QUININE
  24. CHLORAMBUCIL [Concomitant]
     Active Substance: CHLORAMBUCIL
     Route: 065
     Dates: start: 1993, end: 1998

REACTIONS (8)
  - Dyspnoea [Unknown]
  - Oral herpes [Unknown]
  - Pyrexia [Unknown]
  - Herpes zoster [Unknown]
  - Weight decreased [Unknown]
  - Disease progression [Unknown]
  - Death [Fatal]
  - Asthenia [Unknown]
